FAERS Safety Report 5889735-1 (Version None)
Quarter: 2008Q3

REPORT INFORMATION
  Report Type: 
  Country: None (occurrence: None)
  Receive Date: 20080919
  Receipt Date: 20080916
  Transmission Date: 20090109
  Serious: Yes (Other)
  Sender: FDA-Public Use
  Company Number: US-GENENTECH-267626

PATIENT
  Sex: Female
  Weight: 54.422 kg

DRUGS (15)
  1. XOLAIR [Suspect]
     Indication: DRUG USE FOR UNKNOWN INDICATION
     Dosage: 375 MG, UNK
     Route: 058
  2. SINGULAIR [Concomitant]
     Indication: ASTHMA
     Dosage: 10 MG, QD
     Route: 048
  3. SINGULAIR [Concomitant]
     Indication: HYPERSENSITIVITY
  4. ZYRTEC [Concomitant]
     Indication: HYPERSENSITIVITY
     Dosage: 10 MG, QD
     Route: 048
  5. ASTELIN [Concomitant]
     Indication: DRUG USE FOR UNKNOWN INDICATION
     Dosage: 2 PUFF, UNK
  6. LEXAPRO [Concomitant]
     Indication: DEPRESSION
     Dosage: 20 MG, QD
     Route: 048
  7. LEXAPRO [Concomitant]
     Indication: ANXIETY
  8. BUSPAR [Concomitant]
     Indication: ANXIETY
     Dosage: 15 MG, BID
     Route: 048
  9. KEPPRA [Concomitant]
     Indication: CONVULSION
     Dosage: 1500 MG, BID
     Route: 048
  10. CLONAZEPAM [Concomitant]
     Indication: TREMOR
     Dosage: 0.5 MG, TID
     Route: 048
  11. ROZEREM [Concomitant]
     Indication: DRUG USE FOR UNKNOWN INDICATION
  12. NEXIUM [Concomitant]
     Indication: GASTROOESOPHAGEAL REFLUX DISEASE
     Dosage: 40 MG, BID
     Route: 048
  13. CARAFATE [Concomitant]
     Indication: GASTROOESOPHAGEAL REFLUX DISEASE
     Dosage: 2 TSP, PRN
     Route: 048
  14. RANITIDINE [Concomitant]
     Indication: GASTROOESOPHAGEAL REFLUX DISEASE
     Dosage: 300 MG, QHS
     Route: 048
  15. ASMANEX TWISTHALER [Concomitant]
     Indication: ASTHMA
     Dosage: 1 UNK, QD

REACTIONS (1)
  - ANAPHYLACTIC REACTION [None]
